FAERS Safety Report 9126605 (Version 1)
Quarter: 2013Q1

REPORT INFORMATION
  Report Type: Spontaneous
  Country: US (occurrence: None)
  Receive Date: 20130130
  Receipt Date: 20130130
  Transmission Date: 20140127
  Serious: Yes (Death)
  Sender: FDA-Public Use
  Company Number: B0858963A

PATIENT
  Age: 23 Year
  Sex: Female

DRUGS (4)
  1. PAROXETINE HYDROCHLORIDE [Suspect]
     Route: 048
  2. METHADONE HYDROCHLORIDE [Suspect]
     Route: 048
  3. CLONAZEPAM [Suspect]
     Route: 048
  4. MIDAZOLAM [Suspect]
     Route: 048

REACTIONS (1)
  - Drug abuse [None]
